FAERS Safety Report 20415844 (Version 1)
Quarter: 2022Q1

REPORT INFORMATION
  Report Type: Spontaneous
  Country: US (occurrence: US)
  Receive Date: 20220202
  Receipt Date: 20220202
  Transmission Date: 20220423
  Serious: Yes (Other)
  Sender: FDA-Public Use
  Company Number: US-Accord-237680

PATIENT
  Sex: Female

DRUGS (1)
  1. ARIPIPRAZOLE [Suspect]
     Active Substance: ARIPIPRAZOLE
     Indication: Schizophrenia
     Route: 048

REACTIONS (7)
  - Nausea [Unknown]
  - Seizure [Unknown]
  - Abdominal discomfort [Unknown]
  - Wheezing [Unknown]
  - Insomnia [Unknown]
  - Oropharyngeal pain [Unknown]
  - Hunger [Unknown]
